FAERS Safety Report 22798207 (Version 3)
Quarter: 2024Q2

REPORT INFORMATION
  Report Type: Report from Study
  Country: US (occurrence: US)
  Receive Date: 20230808
  Receipt Date: 20240510
  Transmission Date: 20240716
  Serious: Yes (Hospitalization, Other)
  Sender: FDA-Public Use
  Company Number: US-GILEAD-2023-0639216

PATIENT
  Age: 57 Year
  Sex: Female

DRUGS (7)
  1. AMBRISENTAN [Suspect]
     Active Substance: AMBRISENTAN
     Indication: Pulmonary hypertension
     Dosage: 10 MG, QD
     Route: 065
     Dates: start: 20140429
  2. AMBRISENTAN [Suspect]
     Active Substance: AMBRISENTAN
     Dosage: 10 MG, QD
     Route: 065
     Dates: start: 20140429
  3. AMBRISENTAN [Suspect]
     Active Substance: AMBRISENTAN
     Dosage: 10 MG, QD
     Route: 065
     Dates: start: 20140429
  4. UPTRAVI [Suspect]
     Active Substance: SELEXIPAG
     Indication: Product used for unknown indication
     Dosage: UNK
     Route: 065
  5. UPTRAVI [Suspect]
     Active Substance: SELEXIPAG
     Dosage: 800 UG, BID
     Route: 065
  6. SILDENAFIL CITRATE [Concomitant]
     Active Substance: SILDENAFIL CITRATE
     Dosage: UNK
     Route: 065
  7. TADALAFIL [Concomitant]
     Active Substance: TADALAFIL

REACTIONS (11)
  - Neck surgery [Unknown]
  - Spinal fusion surgery [Unknown]
  - Cerebrovascular accident [Unknown]
  - Cerebral haemorrhage [Unknown]
  - Procedural complication [Unknown]
  - Decreased appetite [Unknown]
  - Confusional state [Unknown]
  - Nausea [Unknown]
  - Paraesthesia [Unknown]
  - Insomnia [Unknown]
  - Photophobia [Unknown]

NARRATIVE: CASE EVENT DATE: 20230719
